FAERS Safety Report 4865732-X (Version None)
Quarter: 2005Q4

REPORT INFORMATION
  Report Type: 
  Country: None (occurrence: None)
  Receive Date: 20051220
  Receipt Date: 20051215
  Transmission Date: 20060501
  Serious: Yes (Death)
  Sender: FDA-Public Use
  Company Number: TCI2005A05105

PATIENT
  Age: 88 Year
  Sex: Female

DRUGS (2)
  1. ACTOS [Suspect]
     Indication: DIABETES MELLITUS
     Dosage: 15 (15 MG 1 D)
     Route: 048
     Dates: start: 20050901
  2. LASIX [Suspect]

REACTIONS (6)
  - DIABETIC NEPHROPATHY [None]
  - FEMUR FRACTURE [None]
  - HYPOTHYROIDISM [None]
  - OEDEMA [None]
  - PLEURAL EFFUSION [None]
  - RENAL FAILURE [None]
